FAERS Safety Report 9351949 (Version 1)
Quarter: 2013Q2

REPORT INFORMATION
  Report Type: Spontaneous
  Country: IT (occurrence: IT)
  Receive Date: 20130617
  Receipt Date: 20130617
  Transmission Date: 20140414
  Serious: Yes (Hospitalization)
  Sender: FDA-Public Use
  Company Number: IT-GLAXOSMITHKLINE-B0900114A

PATIENT
  Age: 56 Year
  Sex: Male

DRUGS (4)
  1. SERETIDE [Suspect]
     Indication: CHRONIC OBSTRUCTIVE PULMONARY DISEASE
     Route: 055
  2. VENTOLIN [Suspect]
     Indication: CHRONIC OBSTRUCTIVE PULMONARY DISEASE
     Route: 055
  3. TIOTROPIUM BROMIDE [Suspect]
     Indication: CHRONIC OBSTRUCTIVE PULMONARY DISEASE
     Route: 065
  4. METFORMIN [Concomitant]
     Indication: DIABETES MELLITUS

REACTIONS (8)
  - Palpable purpura [Recovering/Resolving]
  - Petechiae [Unknown]
  - Pyrexia [Unknown]
  - Arthralgia [Unknown]
  - Red blood cell sedimentation rate increased [Unknown]
  - Diabetes mellitus inadequate control [Unknown]
  - Skin lesion [Unknown]
  - Chronic obstructive pulmonary disease [Unknown]
